FAERS Safety Report 4704190-2 (Version None)
Quarter: 2005Q2

REPORT INFORMATION
  Report Type: 
  Country: None (occurrence: None)
  Receive Date: 20050628
  Receipt Date: 20050621
  Transmission Date: 20051028
  Serious: Yes (Hospitalization, Disabling, Other)
  Sender: FDA-Public Use
  Company Number: USA-2005-0020344

PATIENT
  Age: 40 Year
  Sex: Female

DRUGS (4)
  1. PALLADONE [Suspect]
     Indication: PAIN
     Dosage: SEE IMAGE
     Dates: start: 20050501
  2. ATIVAN [Concomitant]
  3. ADDERALL (DEXAMFETAMINE SULFATE, DEXAMFETAMINE SACCHARATE, AMFETAMINE [Concomitant]
  4. ZOLOFT [Concomitant]

REACTIONS (9)
  - BACK INJURY [None]
  - COMA [None]
  - DYSKINESIA [None]
  - FALL [None]
  - HYPOGLYCAEMIA [None]
  - INADEQUATE ANALGESIA [None]
  - LOSS OF CONSCIOUSNESS [None]
  - SELF-MEDICATION [None]
  - SUICIDE ATTEMPT [None]
